FAERS Safety Report 25099787 (Version 2)
Quarter: 2025Q2

REPORT INFORMATION
  Report Type: Spontaneous
  Country: JP (occurrence: JP)
  Receive Date: 20250320
  Receipt Date: 20250410
  Transmission Date: 20250717
  Serious: Yes (Other)
  Sender: IDORSIA PHARMACEUTICALS
  Company Number: JP-IDORSIA-009632-2025-JP

PATIENT
  Age: 64 Year
  Sex: Male

DRUGS (17)
  1. QUVIVIQ [Suspect]
     Active Substance: DARIDOREXANT
     Indication: Insomnia
     Dosage: 50 MG, QD
     Route: 048
     Dates: start: 20250204, end: 20250214
  2. BELSOMRA [Concomitant]
     Active Substance: SUVOREXANT
  3. ASENAPINE MALEATE [Concomitant]
     Active Substance: ASENAPINE MALEATE
  4. CLONAZEPAM [Concomitant]
     Active Substance: CLONAZEPAM
     Dosage: 1 MG, BID
  5. GABAPENTIN ENACARBIL [Concomitant]
     Active Substance: GABAPENTIN ENACARBIL
     Dosage: 300 MG, BID
  6. PRAMIPEXOLE [Concomitant]
     Active Substance: PRAMIPEXOLE
  7. OMEGA-3-ACID ETHYL ESTER [Concomitant]
     Active Substance: OMEGA-3-ACID ETHYL ESTERS
  8. Bilanoa od [Concomitant]
  9. MONTELUKAST [Concomitant]
     Active Substance: MONTELUKAST
  10. MOMETASONE [Concomitant]
     Active Substance: MOMETASONE
     Route: 045
  11. TOFOGLIFLOZIN [Concomitant]
     Active Substance: TOFOGLIFLOZIN
  12. AZILSARTAN KAMEDOXOMIL [Concomitant]
     Active Substance: AZILSARTAN KAMEDOXOMIL
  13. AMLODIPINE [Concomitant]
     Active Substance: AMLODIPINE BESYLATE
  14. LATANOPROST [Concomitant]
     Active Substance: LATANOPROST
  15. CYANOCOBALAMIN [Concomitant]
     Active Substance: CYANOCOBALAMIN
  16. ALLELOCK [Concomitant]
     Active Substance: OLOPATADINE HYDROCHLORIDE
  17. BETAMETHASONE DIPROPIONATE\CALCIPOTRIENE MONOHYDRATE [Concomitant]
     Active Substance: BETAMETHASONE DIPROPIONATE\CALCIPOTRIENE MONOHYDRATE

REACTIONS (2)
  - Rhabdomyolysis [Recovered/Resolved]
  - Asthenia [Recovered/Resolved]

NARRATIVE: CASE EVENT DATE: 20250214
